FAERS Safety Report 6686681-0 (Version None)
Quarter: 2010Q2

REPORT INFORMATION
  Report Type: 
  Country: None (occurrence: None)
  Receive Date: 20100416
  Receipt Date: 20100416
  Transmission Date: 20101027
  Serious: Yes (Hospitalization)
  Sender: FDA-Public Use
  Company Number: None

PATIENT
  Age: 47 Year
  Sex: Male

DRUGS (1)
  1. AMIODARONE HCL [Suspect]
     Indication: VENTRICULAR ARRHYTHMIA
     Dosage: 150 MG BOLUS IV
     Route: 042
     Dates: start: 20100131

REACTIONS (5)
  - APNOEA [None]
  - DRUG HYPERSENSITIVITY [None]
  - GRAND MAL CONVULSION [None]
  - HEART RATE DECREASED [None]
  - UNRESPONSIVE TO STIMULI [None]
